FAERS Safety Report 14624518 (Version 1)
Quarter: 2018Q1

REPORT INFORMATION
  Report Type: Spontaneous
  Country: US (occurrence: US)
  Receive Date: 20180311
  Receipt Date: 20180311
  Transmission Date: 20180509
  Serious: Yes (Other)
  Sender: FDA-Public Use
  Company Number: None

PATIENT
  Age: 64 Year
  Sex: Female
  Weight: 51.75 kg

DRUGS (6)
  1. BUPROPION HYDROCHLORIDE XL [Concomitant]
     Active Substance: BUPROPION HYDROCHLORIDE
  2. MELATONIN [Concomitant]
     Active Substance: MELATONIN
  3. LAMICTAL [Concomitant]
     Active Substance: LAMOTRIGINE
  4. ZESTRIL [Concomitant]
     Active Substance: LISINOPRIL
  5. BUPROPION. [Suspect]
     Active Substance: BUPROPION
     Indication: INSURANCE ISSUE
     Route: 048
     Dates: start: 20180301, end: 20180307
  6. BUSPAR [Concomitant]
     Active Substance: BUSPIRONE HYDROCHLORIDE

REACTIONS (5)
  - Paraesthesia [None]
  - Gait disturbance [None]
  - Dizziness [None]
  - Nausea [None]
  - Product substitution issue [None]

NARRATIVE: CASE EVENT DATE: 20180307
